FAERS Safety Report 11096617 (Version 1)
Quarter: 2015Q2

REPORT INFORMATION
  Report Type: Spontaneous
  Country: CA (occurrence: CA)
  Receive Date: 20150507
  Receipt Date: 20150507
  Transmission Date: 20150821
  Serious: Yes (Death, Other)
  Sender: FDA-Public Use
  Company Number: CA-009507513-1505CAN001368

PATIENT
  Age: 70 Year
  Sex: Male

DRUGS (2)
  1. EMEND [Suspect]
     Active Substance: APREPITANT
     Indication: PROPHYLAXIS OF NAUSEA AND VOMITING
     Dosage: STRENGTH: TRI-PACK 125MG 80MG, 125 MG ON DAY 1
     Route: 048
     Dates: start: 20150421, end: 20150421
  2. EMEND [Suspect]
     Active Substance: APREPITANT
     Dosage: STRENGTH: TRI-PACK 125MG 80MG, 80 MG ON DAY 2 AND 3
     Dates: start: 20150422, end: 20150423

REACTIONS (1)
  - Neoplasm malignant [Fatal]
